FAERS Safety Report 13423532 (Version 9)
Quarter: 2017Q4

REPORT INFORMATION
  Report Type: Spontaneous
  Country: US (occurrence: US)
  Receive Date: 20170410
  Receipt Date: 20171227
  Transmission Date: 20180320
  Serious: Yes (Other)
  Sender: FDA-Public Use
  Company Number: US-IMPAX LABORATORIES, INC-2017-IPXL-00627

PATIENT
  Age: 65 Year
  Sex: Female
  Weight: 46 kg

DRUGS (7)
  1. RYTARY [Suspect]
     Active Substance: CARBIDOPA\LEVODOPA
     Dosage: 48.75/195 MG 1 CAPSULE, 5/DAY
     Route: 048
     Dates: start: 2016, end: 201702
  2. MIRAPEX [Concomitant]
     Active Substance: PRAMIPEXOLE DIHYDROCHLORIDE
     Indication: PARKINSON^S DISEASE
     Dosage: 0.5 MG, 1 CAPSULE, 4 TIMES A DAY
     Route: 065
  3. CARBIDOPA/LEVODOPA [Concomitant]
     Active Substance: CARBIDOPA\LEVODOPA
     Indication: PARKINSON^S DISEASE
     Dosage: FOR FEW WEEKS, UNK
     Route: 065
     Dates: start: 201702, end: 201702
  4. SELEGILINE [Concomitant]
     Active Substance: SELEGILINE
     Indication: PARKINSON^S DISEASE
     Dosage: 0.5 MG, 1 CAPSULE, DAILY
     Route: 065
     Dates: end: 201708
  5. RYTARY [Suspect]
     Active Substance: CARBIDOPA\LEVODOPA
     Dosage: 61.25/245 MG, UNK
     Route: 048
     Dates: start: 2017
  6. RYTARY [Suspect]
     Active Substance: CARBIDOPA\LEVODOPA
     Indication: PARKINSON^S DISEASE
     Dosage: 48.75/195 MG 1 CAPSULE, 5/DAY (AT 07:00AM, 10:00AM, 14:00PM, 15:30PM, AND 21:00PM)
     Route: 048
     Dates: start: 2016, end: 2016
  7. RYTARY [Suspect]
     Active Substance: CARBIDOPA\LEVODOPA
     Dosage: 48.75/195 MG 1 CAPSULE, 5/DAY
     Route: 048
     Dates: start: 201703

REACTIONS (16)
  - Tooth extraction [Unknown]
  - Fall [Unknown]
  - Sleep disorder [Unknown]
  - Headache [Not Recovered/Not Resolved]
  - Nervousness [Unknown]
  - Hallucination [Recovered/Resolved with Sequelae]
  - Drug dose omission [Unknown]
  - Hypokinesia [Recovered/Resolved with Sequelae]
  - Musculoskeletal stiffness [Not Recovered/Not Resolved]
  - Hunger [Not Recovered/Not Resolved]
  - Tremor [Recovered/Resolved with Sequelae]
  - Intentional overdose [Unknown]
  - Malaise [Not Recovered/Not Resolved]
  - Drug effect delayed [Not Recovered/Not Resolved]
  - Intentional underdose [Unknown]
  - Therapeutic response shortened [Not Recovered/Not Resolved]

NARRATIVE: CASE EVENT DATE: 2016
